FAERS Safety Report 8972043 (Version 1)
Quarter: 2012Q4

REPORT INFORMATION
  Report Type: 
  Country: US (occurrence: US)
  Receive Date: 20121218
  Receipt Date: 20121218
  Transmission Date: 20130627
  Serious: Yes (Other)
  Sender: FDA-Public Use
  Company Number: US-PFIZER INC-2012308954

PATIENT
  Age: 33 Year
  Sex: Female
  Weight: 88.44 kg

DRUGS (6)
  1. LYRICA [Suspect]
     Indication: NERVE DAMAGE
     Dosage: 200 mg, 3x/day
     Route: 048
  2. KLONOPIN [Suspect]
     Indication: NERVOUS SYSTEM DISORDER
     Dosage: 0.05 mg, 2x/day
     Route: 048
     Dates: end: 201212
  3. KLONOPIN [Suspect]
     Indication: NAUSEA
  4. KLONOPIN [Suspect]
     Indication: STOMACH PAIN
  5. SEROQUEL [Concomitant]
     Indication: ANXIETY
     Dosage: 75mg (3 tablets of 25mg at one time), 2x/day
  6. SEROQUEL [Concomitant]
     Indication: SLEEP PROBLEM

REACTIONS (3)
  - Pain in extremity [Not Recovered/Not Resolved]
  - Nausea [Not Recovered/Not Resolved]
  - Abdominal pain upper [Not Recovered/Not Resolved]
